FAERS Safety Report 20923377 (Version 1)
Quarter: 2022Q2

REPORT INFORMATION
  Report Type: Spontaneous
  Country: US (occurrence: US)
  Receive Date: 20220607
  Receipt Date: 20220607
  Transmission Date: 20220721
  Serious: Yes (Hospitalization)
  Sender: FDA-Public Use
  Company Number: US-STRIDES ARCOLAB LIMITED-2022SP003286

PATIENT
  Age: 62 Year
  Sex: Male

DRUGS (4)
  1. PREDNISOLONE [Suspect]
     Active Substance: PREDNISOLONE
     Indication: Transitional cell carcinoma
     Dosage: UNK (LOW DOSE)
     Route: 048
  2. DEXAMETHASONE [Suspect]
     Active Substance: DEXAMETHASONE
     Indication: Transitional cell carcinoma
     Dosage: UNK, SYSTEMIC
     Route: 065
  3. ENFORTUMAB VEDOTIN [Concomitant]
     Active Substance: ENFORTUMAB VEDOTIN
     Indication: Transitional cell carcinoma
     Dosage: UNK,INFUSION
     Route: 050
  4. CISPLATIN [Concomitant]
     Active Substance: CISPLATIN
     Indication: Transitional cell carcinoma
     Dosage: UNK, (INFUSION)
     Route: 050

REACTIONS (1)
  - Cataract subcapsular [Recovered/Resolved]
